FAERS Safety Report 8991764 (Version 1)
Quarter: 2012Q4

REPORT INFORMATION
  Report Type: Report from Study
  Country: CA (occurrence: CA)
  Receive Date: 20121231
  Receipt Date: 20121231
  Transmission Date: 20130627
  Serious: Yes (Life-Threatening, Hospitalization)
  Sender: FDA-Public Use
  Company Number: CA-JNJFOC-20121210135

PATIENT
  Age: 47 Year
  Sex: Female
  Weight: 48 kg

DRUGS (7)
  1. REMICADE [Suspect]
     Indication: CROHN^S DISEASE
     Route: 042
     Dates: start: 201102
  2. SALOFALK [Concomitant]
     Route: 065
  3. EFFEXOR [Concomitant]
     Route: 065
  4. TRAZODONE [Concomitant]
     Route: 065
  5. CLONAZEPAM [Concomitant]
     Route: 065
  6. AERIUS [Concomitant]
     Dosage: taken as needed
     Route: 065
  7. VITAMIN [Concomitant]
     Route: 065

REACTIONS (1)
  - Depressed mood [Recovered/Resolved]
